FAERS Safety Report 5940948-X (Version None)
Quarter: 2008Q4

REPORT INFORMATION
  Report Type: 
  Country: None (occurrence: None)
  Receive Date: 20081104
  Receipt Date: 20081023
  Transmission Date: 20090506
  Serious: Yes (Hospitalization)
  Sender: FDA-Public Use
  Company Number: US-ELI_LILLY_AND_COMPANY-US200810006218

PATIENT
  Sex: Female
  Weight: 74.83 kg

DRUGS (9)
  1. EXENATIDE [Suspect]
     Indication: TYPE 2 DIABETES MELLITUS
     Dosage: 5 UG, 2/D
     Route: 058
     Dates: start: 20080201, end: 20080301
  2. EXENATIDE [Suspect]
     Dosage: 10 UG, 2/D
     Route: 058
     Dates: start: 20080301
  3. METFORMIN HCL [Concomitant]
     Indication: TYPE 2 DIABETES MELLITUS
  4. LEXAPRO [Concomitant]
     Indication: ANXIETY
     Dosage: 10 MG, DAILY (1/D)
  5. BUPROPION HCL [Concomitant]
     Indication: DEPRESSION
     Dosage: 150 MG, 2/D
  6. RHINOCORT [Concomitant]
     Indication: MULTIPLE ALLERGIES
     Dosage: UNK, EACH MORNING
     Route: 045
  7. CLARITIN [Concomitant]
     Indication: MULTIPLE ALLERGIES
     Dosage: UNK, EACH MORNING
  8. ALLEGRA D                          /01367401/ [Concomitant]
     Indication: NASAL CONGESTION
     Dosage: UNK, AS NEEDED
  9. DIMETAPP [Concomitant]
     Indication: COUGH
     Dosage: UNK, AS NEEDED

REACTIONS (11)
  - ABDOMINAL DISCOMFORT [None]
  - BLOOD CHOLESTEROL INCREASED [None]
  - COUGH [None]
  - EARLY SATIETY [None]
  - FLATULENCE [None]
  - GASTROOESOPHAGEAL REFLUX DISEASE [None]
  - HIATUS HERNIA [None]
  - HUNGER [None]
  - HYPERTENSION [None]
  - INSOMNIA [None]
  - THROAT IRRITATION [None]
